FAERS Safety Report 22670985 (Version 2)
Quarter: 2024Q3

REPORT INFORMATION
  Report Type: Spontaneous
  Country: US (occurrence: US)
  Receive Date: 20230705
  Receipt Date: 20240702
  Transmission Date: 20241016
  Serious: No
  Sender: SAREPTA THERAPEUTICS
  Company Number: US-SAREPTA THERAPEUTICS INC.-SRP2023-002995

PATIENT
  Age: 18 Year
  Sex: Male

DRUGS (4)
  1. EXONDYS 51 [Suspect]
     Active Substance: ETEPLIRSEN
     Indication: Duchenne muscular dystrophy
     Dosage: 3600 MILLIGRAM, WEEKLY
     Route: 042
     Dates: start: 20180301, end: 20221230
  2. EXONDYS 51 [Suspect]
     Active Substance: ETEPLIRSEN
     Dosage: 3600 MILLIGRAM, WEEKLY
     Route: 042
     Dates: start: 20230111, end: 20230510
  3. EXONDYS 51 [Suspect]
     Active Substance: ETEPLIRSEN
     Dosage: 4150 MILLIGRAM, WEEKLY
     Route: 042
     Dates: start: 20230722, end: 20230805
  4. EXONDYS 51 [Suspect]
     Active Substance: ETEPLIRSEN
     Dosage: 4150 MILLIGRAM, WEEKLY
     Route: 042
     Dates: start: 20230830

REACTIONS (4)
  - Poor venous access [Recovered/Resolved]
  - Chromaturia [Recovered/Resolved]
  - Fluid intake reduced [Recovered/Resolved]
  - Dehydration [Recovered/Resolved]

NARRATIVE: CASE EVENT DATE: 20230106
